FAERS Safety Report 6868689-5 (Version None)
Quarter: 2010Q3

REPORT INFORMATION
  Report Type: 
  Country: None (occurrence: None)
  Receive Date: 20100721
  Receipt Date: 20100721
  Transmission Date: 20110219
  Serious: Yes (Life-Threatening, Hospitalization)
  Sender: FDA-Public Use
  Company Number: None

PATIENT
  Sex: Female

DRUGS (1)
  1. FUROSEMIDE 80MG [Suspect]
     Indication: OEDEMA PERIPHERAL
     Dosage: TAKE 2 TWICE DAILY IN AM PO
     Route: 048
     Dates: start: 20080813, end: 20100228

REACTIONS (7)
  - BLOOD POTASSIUM DECREASED [None]
  - HALLUCINATION [None]
  - LIP DRY [None]
  - MUSCLE TWITCHING [None]
  - PAIN IN EXTREMITY [None]
  - RENAL FAILURE [None]
  - VERTIGO [None]
